FAERS Safety Report 8175805 (Version 2)
Quarter: 2013Q3

REPORT INFORMATION
  Report Type: Spontaneous
  Country: FR (occurrence: FR)
  Receive Date: 20111011
  Receipt Date: 20130927
  Transmission Date: 20140515
  Serious: Yes (Life-Threatening, Hospitalization)
  Sender: FDA-Public Use
  Company Number: FR-CELGENEUS-056-50794-11100511

PATIENT
  Age: 83 Year
  Sex: Male

DRUGS (8)
  1. VIDAZA [Suspect]
     Indication: ACUTE MYELOID LEUKAEMIA
     Route: 058
     Dates: start: 20090804
  2. VIDAZA [Suspect]
     Route: 058
     Dates: start: 20090902
  3. VIDAZA [Suspect]
     Route: 058
     Dates: start: 20100430
  4. VIDAZA [Suspect]
     Route: 058
     Dates: start: 20101126
  5. VIDAZA [Suspect]
     Route: 058
     Dates: start: 20110318
  6. VIDAZA [Suspect]
     Route: 058
     Dates: start: 20110415
  7. VIDAZA [Suspect]
     Route: 058
     Dates: start: 20110523
  8. VIDAZA [Suspect]
     Route: 058
     Dates: end: 20110722

REACTIONS (4)
  - Interstitial lung disease [Recovered/Resolved with Sequelae]
  - Pneumocystis jirovecii pneumonia [Recovered/Resolved]
  - Acute pulmonary oedema [Recovered/Resolved]
  - Lung disorder [Unknown]
